FAERS Safety Report 22038083 (Version 1)
Quarter: 2023Q1

REPORT INFORMATION
  Report Type: Spontaneous
  Country: US (occurrence: US)
  Receive Date: 20230227
  Receipt Date: 20230227
  Transmission Date: 20230418
  Serious: No
  Sender: FDA-Public Use
  Company Number: US-IGSA-BIG0017807

PATIENT
  Age: 63 Year
  Sex: Male
  Weight: 82.993 kg

DRUGS (14)
  1. PROLASTIN-C LIQUID [Suspect]
     Active Substance: .ALPHA.1-PROTEINASE INHIBITOR HUMAN
     Indication: Alpha-1 antitrypsin deficiency
     Dosage: 4974 MILLIGRAM, Q.WK.
     Route: 042
     Dates: start: 20220216, end: 20220216
  2. PROLASTIN-C LIQUID [Suspect]
     Active Substance: .ALPHA.1-PROTEINASE INHIBITOR HUMAN
     Dosage: UNK
  3. PREDNISONE [Concomitant]
     Active Substance: PREDNISONE
  4. RANITIDINE HYDROCHLORIDE [Concomitant]
     Active Substance: RANITIDINE HYDROCHLORIDE
  5. ATORVASTATIN CALCIUM [Concomitant]
     Active Substance: ATORVASTATIN CALCIUM
  6. THEOPHYLLINE [Concomitant]
     Active Substance: THEOPHYLLINE
  7. IPRATROPIUM BROMIDE AND ALBUTEROL SULFATE [Concomitant]
     Active Substance: ALBUTEROL SULFATE\IPRATROPIUM BROMIDE
  8. ADVAIR HFA [Concomitant]
     Active Substance: FLUTICASONE PROPIONATE\SALMETEROL XINAFOATE
  9. KRILL OIL OMEGA 3 [Concomitant]
  10. COMBIVENT RESPIMAT [Concomitant]
     Active Substance: ALBUTEROL SULFATE\IPRATROPIUM BROMIDE
  11. VITAMINS [Concomitant]
     Active Substance: VITAMINS
  12. UROXATRAL [Concomitant]
     Active Substance: ALFUZOSIN HYDROCHLORIDE
  13. LISINOPRIL [Concomitant]
     Active Substance: LISINOPRIL
  14. DOXYCYCLINE HYCLATE [Concomitant]
     Active Substance: DOXYCYCLINE HYCLATE

REACTIONS (2)
  - Dizziness [Recovering/Resolving]
  - Hyperhidrosis [Recovering/Resolving]

NARRATIVE: CASE EVENT DATE: 20220216
